FAERS Safety Report 7362964-6 (Version None)
Quarter: 2011Q1

REPORT INFORMATION
  Report Type: 
  Country: None (occurrence: None)
  Receive Date: 20110321
  Receipt Date: 20091016
  Transmission Date: 20110831
  Serious: No
  Sender: FDA-Public Use
  Company Number: 2009BI033734

PATIENT
  Age: 60 Year
  Sex: Female

DRUGS (1)
  1. TYSABRI [Suspect]
     Indication: MULTIPLE SCLEROSIS
     Route: 042
     Dates: start: 20071121

REACTIONS (6)
  - DEMENTIA [None]
  - VITAMIN D DECREASED [None]
  - CYSTITIS [None]
  - MEMORY IMPAIRMENT [None]
  - FALL [None]
  - CONTUSION [None]
